FAERS Safety Report 5284300-1 (Version None)
Quarter: 2007Q1

REPORT INFORMATION
  Report Type: 
  Country: None (occurrence: None)
  Receive Date: 20061227
  Receipt Date: 20061006
  Transmission Date: 20070707
  Serious: Yes (Hospitalization)
  Sender: FDA-Public Use
  Company Number: A03200603062

PATIENT
  Age: 31 Year
  Sex: Female
  Weight: 84.8226 kg

DRUGS (21)
  1. AMBIEN [Suspect]
     Indication: INSOMNIA
     Dosage: 12.5 MG HS - ORAL
     Route: 048
     Dates: start: 20060401, end: 20060509
  2. AMBIEN [Suspect]
     Indication: INSOMNIA
     Dosage: 6.25 MG - ORAL
     Route: 048
     Dates: start: 20060204
  3. AMBIEN [Suspect]
     Indication: INSOMNIA
     Dosage: 5 MG ONCE - ORAL
     Route: 048
     Dates: start: 20060506, end: 20060506
  4. AMBIEN [Suspect]
     Indication: DEPRESSION
     Dosage: 100 MG QD - ORAL
     Route: 048
     Dates: start: 20060101
  5. ESZOPICLONE - TABLET - UNIT DOSE : UNKNOWN [Suspect]
     Dosage: ORAL
     Route: 048
     Dates: start: 20060506, end: 20060506
  6. ELAVIL [Suspect]
     Indication: DEPRESSION
     Dosage: ORAL
     Route: 048
     Dates: start: 20060506, end: 20060506
  7. ELAVIL [Suspect]
     Indication: FIBROMYALGIA
     Dosage: ORAL
     Route: 048
     Dates: start: 20060506, end: 20060506
  8. ELAVIL [Suspect]
     Indication: MIGRAINE
     Dosage: ORAL
     Route: 048
     Dates: start: 20060506, end: 20060506
  9. TEGASEROD [Concomitant]
  10. PARACETAMOL [Concomitant]
  11. WARFARIN SODIUM [Concomitant]
  12. ACETAMINOPHEN AND HYDROCODONE BITARTRATE [Concomitant]
  13. IBUPROFEN [Concomitant]
  14. MELOXICAM [Concomitant]
  15. ULTRACET [Concomitant]
  16. MACROGOL [Concomitant]
  17. SENNA [Concomitant]
  18. PRIMIDONE [Concomitant]
  19. ORLISTAT [Concomitant]
  20. PANTOPRAZOLE SODIUM [Concomitant]
  21. DOCUSATE SODIUM [Concomitant]

REACTIONS (32)
  - ABNORMAL BEHAVIOUR [None]
  - AMNESIA [None]
  - ANXIETY [None]
  - ASTHENIA [None]
  - BACK PAIN [None]
  - CONFUSIONAL STATE [None]
  - DEPRESSION [None]
  - DIARRHOEA [None]
  - DISORIENTATION [None]
  - DIZZINESS [None]
  - DRUG ABUSER [None]
  - DYSARTHRIA [None]
  - DYSKINESIA [None]
  - DYSPNOEA [None]
  - EATING DISORDER [None]
  - ENERGY INCREASED [None]
  - HYPOAESTHESIA [None]
  - HYPOGLYCAEMIA [None]
  - INTENTIONAL OVERDOSE [None]
  - IRRITABILITY [None]
  - MUSCULAR WEAKNESS [None]
  - NAUSEA [None]
  - PALPITATIONS [None]
  - PHARYNGOLARYNGEAL PAIN [None]
  - SLEEP TALKING [None]
  - SLEEP WALKING [None]
  - SPEECH DISORDER [None]
  - SYNCOPE [None]
  - TREMOR [None]
  - URINE OUTPUT DECREASED [None]
  - VOMITING [None]
  - WEIGHT INCREASED [None]
